FAERS Safety Report 14095302 (Version 3)
Quarter: 2018Q4

REPORT INFORMATION
  Report Type: Spontaneous
  Country: US (occurrence: US)
  Receive Date: 20171017
  Receipt Date: 20181009
  Transmission Date: 20190204
  Serious: Yes (Other)
  Sender: FDA-Public Use
  Company Number: PHEH2017US032313

PATIENT
  Age: 60 Year
  Sex: Male
  Weight: 55.7 kg

DRUGS (1)
  1. ENTRESTO [Suspect]
     Active Substance: SACUBITRIL\VALSARTAN
     Indication: CARDIOMYOPATHY
     Dosage: 50 MG, BID
     Route: 048
     Dates: start: 20170928, end: 20171004

REACTIONS (3)
  - Angioedema [Recovered/Resolved]
  - Lip swelling [Unknown]
  - Speech disorder [Unknown]

NARRATIVE: CASE EVENT DATE: 20171002
